FAERS Safety Report 15334195 (Version 1)
Quarter: 2018Q3

REPORT INFORMATION
  Report Type: Spontaneous
  Country: US (occurrence: US)
  Receive Date: 20180827
  Receipt Date: 20180827
  Transmission Date: 20181010
  Serious: Yes (Other)
  Sender: FDA-Public Use
  Company Number: None

PATIENT
  Age: 18 Year
  Sex: Female
  Weight: 56.25 kg

DRUGS (4)
  1. RAINBOW LIGHT VITAMINS [Concomitant]
  2. SPRINTEC [Suspect]
     Active Substance: ETHINYL ESTRADIOL\NORGESTIMATE
     Indication: ACNE
     Dosage: ?          QUANTITY:1 TABLET(S);?
     Route: 048
     Dates: start: 20180824, end: 20180825
  3. TEEN MULTIVITAMIN [Concomitant]
  4. SPRINTEC [Suspect]
     Active Substance: ETHINYL ESTRADIOL\NORGESTIMATE
     Indication: CONTRACEPTION
     Dosage: ?          QUANTITY:1 TABLET(S);?
     Route: 048
     Dates: start: 20180824, end: 20180825

REACTIONS (8)
  - Anxiety [None]
  - Depression [None]
  - Apathy [None]
  - Hypophagia [None]
  - Crying [None]
  - Lethargy [None]
  - Mental impairment [None]
  - Feeling abnormal [None]

NARRATIVE: CASE EVENT DATE: 20180825
